FAERS Safety Report 6349005-4 (Version None)
Quarter: 2009Q3

REPORT INFORMATION
  Report Type: 
  Country: None (occurrence: None)
  Receive Date: 20090911
  Receipt Date: 20090908
  Transmission Date: 20100115
  Serious: Yes (Other)
  Sender: FDA-Public Use
  Company Number: US-BAYER-200926868NA

PATIENT
  Age: 24 Year
  Sex: Female
  Weight: 106 kg

DRUGS (2)
  1. YAZ [Suspect]
     Indication: CONTRACEPTION
     Dosage: TOTAL DAILY DOSE: 1 DF
     Route: 048
     Dates: start: 20070601
  2. ADIPEX-P [Concomitant]
     Indication: DRUG USE FOR UNKNOWN INDICATION
     Dosage: INTERMITTENT USE
     Route: 048

REACTIONS (2)
  - ANTIPHOSPHOLIPID ANTIBODIES POSITIVE [None]
  - DEEP VEIN THROMBOSIS [None]
